FAERS Safety Report 23777712 (Version 1)
Quarter: 2024Q2

REPORT INFORMATION
  Report Type: Spontaneous
  Country: RU (occurrence: RU)
  Receive Date: 20240424
  Receipt Date: 20240424
  Transmission Date: 20240716
  Serious: Yes (Other)
  Sender: FDA-Public Use
  Company Number: RU-SANDOZ-SDZ2024RU042108

PATIENT
  Sex: Female
  Weight: 58 kg

DRUGS (1)
  1. METHOTREXATE [Suspect]
     Active Substance: METHOTREXATE
     Indication: Rheumatoid arthritis
     Dosage: UNK
     Route: 030
     Dates: start: 201609, end: 202302

REACTIONS (2)
  - Transaminases increased [Recovering/Resolving]
  - Illness [Recovering/Resolving]

NARRATIVE: CASE EVENT DATE: 20221101
